FAERS Safety Report 6401653-9 (Version None)
Quarter: 2009Q4

REPORT INFORMATION
  Report Type: 
  Country: None (occurrence: None)
  Receive Date: 20091009
  Receipt Date: 20091009
  Transmission Date: 20100525
  Serious: Yes (Other)
  Sender: FDA-Public Use
  Company Number: None

PATIENT
  Sex: Male
  Weight: 88.4514 kg

DRUGS (1)
  1. CIPROFLOXACIN 500 MG DR REDDYS LABS INC [Suspect]
     Indication: SINUSITIS
     Dosage: 500MG TABLET BID PO
     Route: 048
     Dates: start: 20091008, end: 20091008

REACTIONS (3)
  - DYSPNOEA [None]
  - MUSCULOSKELETAL PAIN [None]
  - PAINFUL RESPIRATION [None]
